FAERS Safety Report 5027356-3 (Version None)
Quarter: 2006Q2

REPORT INFORMATION
  Report Type: 
  Country: None (occurrence: None)
  Receive Date: 20060615
  Receipt Date: 20060524
  Transmission Date: 20061013
  Serious: Yes (Hospitalization, Disabling)
  Sender: FDA-Public Use
  Company Number: US-MERCK-0605USA04488

PATIENT
  Age: 83 Year
  Sex: Female
  Weight: 55 kg

DRUGS (9)
  1. SINGULAIR [Suspect]
     Indication: HYPERSENSITIVITY
     Route: 048
  2. ALBUTEROL [Concomitant]
     Route: 065
  3. COMBIVENT [Concomitant]
     Route: 065
  4. DOXEPIN HYDROCHLORIDE [Concomitant]
     Route: 065
  5. ASPIRIN [Concomitant]
     Route: 065
  6. LOTREL [Concomitant]
     Route: 065
  7. AMBIEN [Concomitant]
     Route: 065
  8. NEXIUM [Concomitant]
     Route: 065
  9. FLEXERIL [Concomitant]
     Route: 065

REACTIONS (2)
  - GLOSSITIS [None]
  - ORAL CANDIDIASIS [None]
